FAERS Safety Report 10071459 (Version 1)
Quarter: 2014Q2

REPORT INFORMATION
  Report Type: Report from Study
  Country: HR (occurrence: HR)
  Receive Date: 20140410
  Receipt Date: 20140410
  Transmission Date: 20141212
  Serious: Yes (Other)
  Sender: FDA-Public Use
  Company Number: HR-BAXTER-2014BAX018530

PATIENT
  Sex: 0

DRUGS (5)
  1. TISSEEL LYO [Suspect]
     Indication: PTERYGIUM OPERATION
     Route: 065
  2. TISSEEL LYO [Suspect]
     Indication: OFF LABEL USE
  3. POLYMYXIN B [Concomitant]
     Indication: PRODUCT USED FOR UNKNOWN INDICATION
     Route: 047
  4. NEOMYCIN SULFATE [Concomitant]
     Indication: PRODUCT USED FOR UNKNOWN INDICATION
     Route: 047
  5. DEXAMETHASONE [Concomitant]
     Indication: PRODUCT USED FOR UNKNOWN INDICATION
     Route: 047

REACTIONS (1)
  - Pterygium [Unknown]
